FAERS Safety Report 9481938 (Version 2)
Quarter: 2013Q4

REPORT INFORMATION
  Report Type: Spontaneous
  Country: US (occurrence: US)
  Receive Date: 20130828
  Receipt Date: 20131018
  Transmission Date: 20140711
  Serious: Yes (Hospitalization)
  Sender: FDA-Public Use
  Company Number: US-SHIRE-ALL1-2013-05812

PATIENT
  Sex: Female

DRUGS (3)
  1. VYVANSE [Suspect]
     Indication: ATTENTION DEFICIT/HYPERACTIVITY DISORDER
     Dosage: 60 MG, 1X/DAY:QD
     Route: 048
     Dates: start: 201303
  2. VYVANSE [Suspect]
     Dosage: 40 MG, 1X/DAY:QD
     Route: 048
     Dates: start: 201111, end: 201112
  3. VYVANSE [Suspect]
     Dosage: 50 MG, UNKNOWN
     Route: 048
     Dates: start: 201112, end: 201203

REACTIONS (3)
  - Hospitalisation [Unknown]
  - Tachycardia [Unknown]
  - Product quality issue [Unknown]
